FAERS Safety Report 5015266-7 (Version None)
Quarter: 2006Q2

REPORT INFORMATION
  Report Type: 
  Country: None (occurrence: None)
  Receive Date: 20060601
  Receipt Date: 20060510
  Transmission Date: 20061013
  Serious: Yes (Death)
  Sender: FDA-Public Use
  Company Number: JP-SP-2006-01142

PATIENT
  Age: 81 Year
  Sex: Male

DRUGS (4)
  1. IMMUCYST [Suspect]
     Indication: BLADDER CANCER
     Route: 043
     Dates: start: 20051222, end: 20060209
  2. NAFTOPIDIL [Concomitant]
     Route: 048
     Dates: start: 20051112, end: 20060406
  3. PROPIVERINE HYDROCHLORIDE [Concomitant]
     Route: 048
     Dates: start: 20051205, end: 20060103
  4. CEFCAPENE PIVOXIL HYDROCHLORIDE [Concomitant]
     Route: 048
     Dates: start: 20060209, end: 20060216

REACTIONS (5)
  - LEUKAEMIA [None]
  - MALAISE [None]
  - MYELODYSPLASTIC SYNDROME [None]
  - PANCYTOPENIA [None]
  - PNEUMONIA [None]
